FAERS Safety Report 9505547 (Version 1)
Quarter: 2013Q1

REPORT INFORMATION
  Report Type: Spontaneous
  Country: US (occurrence: None)
  Receive Date: 20130220
  Receipt Date: 20130220
  Transmission Date: 20140127
  Serious: No
  Sender: FDA-Public Use
  Company Number: 1000041509

PATIENT
  Age: 65 Year
  Sex: Male

DRUGS (4)
  1. VIIBYRD (VILAZODONE HYDROCHLORIDE) [Suspect]
     Indication: DEPRESSION
     Dosage: 10 MG (10 MG, 1 IN 1 D), ORAL
     Route: 048
     Dates: start: 201211, end: 2012
  2. VIIBRYD (VILAZODONE HYDROCHLORIDE) [Suspect]
     Indication: DEPRESSION
     Dosage: 20 MG (20 MG, 1 IN 1 D), ORAL
     Route: 048
     Dates: start: 20121205, end: 20121218
  3. TRAZODONE (TRAZODONE) (TRAZODONE) [Concomitant]
  4. LIDOCAINE (LIDOCAINE) (TRANSDERMAL) (LIDOCAINE) [Concomitant]

REACTIONS (2)
  - Muscular weakness [None]
  - Nausea [None]
